FAERS Safety Report 8137539-1 (Version None)
Quarter: 2012Q1

REPORT INFORMATION
  Report Type: 
  Country: None (occurrence: None)
  Receive Date: 20120215
  Receipt Date: 20120207
  Transmission Date: 20120608
  Serious: Yes (Hospitalization)
  Sender: FDA-Public Use
  Company Number: US-US-EMD SERONO, INC.-7011725

PATIENT
  Sex: Male
  Weight: 77 kg

DRUGS (4)
  1. REBIF [Suspect]
     Indication: RELAPSING-REMITTING MULTIPLE SCLEROSIS
     Route: 058
     Dates: start: 20070112, end: 20090627
  2. REBIF [Suspect]
     Route: 058
     Dates: start: 20100729
  3. REBIF [Suspect]
     Route: 058
     Dates: start: 20100101, end: 20100101
  4. REBIF [Suspect]
     Route: 058
     Dates: start: 20100101

REACTIONS (6)
  - ARTERIAL OCCLUSIVE DISEASE [None]
  - INJECTION SITE ERYTHEMA [None]
  - CHEST PAIN [None]
  - ORAL DISORDER [None]
  - VOCAL CORD DISORDER [None]
  - RED BLOOD CELL COUNT DECREASED [None]
